FAERS Safety Report 12312683 (Version 1)
Quarter: 2016Q2

REPORT INFORMATION
  Report Type: Spontaneous
  Country: TN (occurrence: TN)
  Receive Date: 20160428
  Receipt Date: 20160428
  Transmission Date: 20160815
  Serious: Yes (Life-Threatening, Other)
  Sender: FDA-Public Use
  Company Number: TN-ACCORD-039927

PATIENT
  Age: 5 Year
  Sex: Male
  Weight: 14.5 kg

DRUGS (9)
  1. METHOTREXATE [Suspect]
     Active Substance: METHOTREXATE
     Indication: PRODUCT USED FOR UNKNOWN INDICATION
     Dosage: COP, COPADM 1 AND 2 (3 G/M2 ON DAY 1, ON DAY 2), CYM COURSE (3 G/M2 ON DAY 1, ALSO FROM DAYS 2 TO 6)
     Route: 037
  2. CYTARABINE/CYTARABINE HYDROCHLORIDE/CYTARABINE OCFOSFATE [Suspect]
     Active Substance: CYTARABINE
     Indication: PRODUCT USED FOR UNKNOWN INDICATION
     Dosage: PER DAY FROM DAYS 2 TO 6
  3. CARBOPLATIN. [Suspect]
     Active Substance: CARBOPLATIN
     Indication: PRODUCT USED FOR UNKNOWN INDICATION
     Dosage: WITH THE DOSE REDUCED TO TWO-THIRDS
  4. ETOPOSIDE. [Suspect]
     Active Substance: ETOPOSIDE
     Indication: PRODUCT USED FOR UNKNOWN INDICATION
     Dosage: WITH THE DOSE REDUCED TO TWO-THIRDS
  5. VINCRISTINE [Suspect]
     Active Substance: VINCRISTINE
     Indication: PRODUCT USED FOR UNKNOWN INDICATION
     Dosage: DAY 1, COPADM 1 AND 2 (2 MG/M2 ON DAY 1)
  6. DOXORUBICIN [Suspect]
     Active Substance: DOXORUBICIN
     Indication: PRODUCT USED FOR UNKNOWN INDICATION
     Dosage: DAY 2
  7. IFOSFAMIDE. [Suspect]
     Active Substance: IFOSFAMIDE
     Indication: PRODUCT USED FOR UNKNOWN INDICATION
     Dosage: WITH THE DOSE REDUCED TO TWO-THIRDS
  8. CYCLOPHOSPHAMIDE/CYCLOPHOSPHAMIDE MONOHYDRATE [Suspect]
     Active Substance: CYCLOPHOSPHAMIDE
     Indication: PRODUCT USED FOR UNKNOWN INDICATION
     Dosage: DAY 1, COPADM 1 AND 2 (250 MG/ M2 TWICE A DAY ON DAYS 2-4),
  9. PREDNISOLONE. [Suspect]
     Active Substance: PREDNISOLONE
     Indication: PRODUCT USED FOR UNKNOWN INDICATION
     Dosage: DAYS 1-7, COPADM 1 AND 2 (60/M2 FROM DAY 1 TO 5)

REACTIONS (3)
  - Bone marrow failure [Recovered/Resolved]
  - Toxicity to various agents [Unknown]
  - Mucosal inflammation [Unknown]
